FAERS Safety Report 8432579-7 (Version None)
Quarter: 2012Q2

REPORT INFORMATION
  Report Type: 
  Country: None (occurrence: None)
  Receive Date: 20120613
  Receipt Date: 20120529
  Transmission Date: 20120825
  Serious: Yes (Death)
  Sender: FDA-Public Use
  Company Number: DE-AMGEN-DEUCT2012030124

PATIENT
  Sex: Female

DRUGS (9)
  1. REMICADE [Concomitant]
     Dosage: UNK
     Dates: start: 20011101, end: 20020101
  2. METHOTREXATE [Concomitant]
     Dosage: UNK
     Dates: start: 20000801, end: 20031101
  3. ADALIMUMAB [Concomitant]
     Dosage: UNK
     Dates: start: 20030701, end: 20040801
  4. METHOTREXATE [Concomitant]
     Dosage: UNK
     Dates: start: 20040201, end: 20060901
  5. ETANERCEPT [Suspect]
     Indication: PRODUCT USED FOR UNKNOWN INDICATION
     Dosage: UNK
     Dates: start: 20040801, end: 20060901
  6. KINERET [Concomitant]
     Dosage: UNK
     Dates: start: 20020501, end: 20030301
  7. METHOTREXATE [Concomitant]
     Dosage: UNK
     Dates: start: 20070601
  8. SULFASALAZINE [Concomitant]
     Dosage: UNK
     Dates: start: 20080201, end: 20080201
  9. HYDROXYCHLOROQUINE SULFATE [Concomitant]
     Dosage: UNK
     Dates: start: 20080201, end: 20080201

REACTIONS (2)
  - METASTASES TO LUNG [None]
  - PULMONARY OEDEMA [None]
